FAERS Safety Report 4673160-5 (Version None)
Quarter: 2005Q2

REPORT INFORMATION
  Report Type: 
  Country: None (occurrence: None)
  Receive Date: 20050524
  Receipt Date: 20050524
  Transmission Date: 20051028
  Serious: Yes (Hospitalization)
  Sender: FDA-Public Use
  Company Number: None

PATIENT
  Age: 11 Year
  Sex: Female

DRUGS (2)
  1. ATOMOXETINE [Suspect]
     Dates: start: 20040615, end: 20040930
  2. MULTIVITAMIN WITH IRON [Concomitant]

REACTIONS (4)
  - AUTOIMMUNE HEPATITIS [None]
  - CHRONIC HEPATITIS [None]
  - HEPATIC FIBROSIS [None]
  - HEPATITIS ACUTE [None]
